FAERS Safety Report 23478544 (Version 1)
Quarter: 2024Q1

REPORT INFORMATION
  Report Type: Report from Study
  Country: AT (occurrence: AT)
  Receive Date: 20240205
  Receipt Date: 20240205
  Transmission Date: 20240410
  Serious: No
  Sender: FDA-Public Use
  Company Number: AT-IPSEN Group, Research and Development-2023-24389

PATIENT

DRUGS (1)
  1. CABOMETYX [Suspect]
     Active Substance: CABOZANTINIB S-MALATE
     Indication: Renal cell carcinoma
     Route: 065

REACTIONS (4)
  - Impaired quality of life [Unknown]
  - Disease progression [Unknown]
  - Drug ineffective [Unknown]
  - Drug intolerance [Unknown]
